FAERS Safety Report 4713095-2 (Version None)
Quarter: 2005Q3

REPORT INFORMATION
  Report Type: 
  Country: None (occurrence: None)
  Receive Date: 20050712
  Receipt Date: 20050712
  Transmission Date: 20060218
  Serious: Yes (Life-Threatening, Hospitalization)
  Sender: FDA-Public Use
  Company Number: None

PATIENT
  Age: 53 Year
  Sex: Female
  Weight: 55.4 kg

DRUGS (12)
  1. QUETIAPINE [Suspect]
     Indication: PSYCHOTIC DISORDER
     Dosage: 50 MG , 25 MG BID , ORAL
     Route: 048
     Dates: start: 20050329, end: 20050407
  2. ACETAMINOPHEN [Concomitant]
  3. ENOXAPARIN SODIUM [Concomitant]
  4. DIAZEPAM [Concomitant]
  5. PROPOXYPHENE N 100 MG/ACETAMINOPHEN [Concomitant]
  6. FERRPIS SULFATE [Concomitant]
  7. QUETIAPINE FLUMARATE [Concomitant]
  8. METRONIDAZOLE [Concomitant]
  9. THIAMINE HCL [Concomitant]
  10. FOLIC ACID [Concomitant]
  11. CYANOCOBALAMIN [Concomitant]
  12. ACETAMINOPHEN [Concomitant]

REACTIONS (6)
  - BLOOD PRESSURE INCREASED [None]
  - BODY TEMPERATURE INCREASED [None]
  - MUSCLE RIGIDITY [None]
  - NEUROLEPTIC MALIGNANT SYNDROME [None]
  - TACHYCARDIA [None]
  - TREMOR [None]
